FAERS Safety Report 19039885 (Version 3)
Quarter: 2021Q2

REPORT INFORMATION
  Report Type: Report from Study
  Country: CA (occurrence: CA)
  Receive Date: 20210322
  Receipt Date: 20210605
  Transmission Date: 20210717
  Serious: Yes (Other)
  Sender: FDA-Public Use
  Company Number: CA-TAKEDA-2021TUS016271

PATIENT
  Age: 54 Year
  Sex: Female

DRUGS (5)
  1. VEDOLIZUMAB [Suspect]
     Active Substance: VEDOLIZUMAB
     Indication: CROHN^S DISEASE
     Dosage: 300 MILLIGRAM
     Route: 042
     Dates: start: 20201203
  2. VEDOLIZUMAB [Suspect]
     Active Substance: VEDOLIZUMAB
     Dosage: 300 MILLIGRAM
     Route: 042
  3. VEDOLIZUMAB [Suspect]
     Active Substance: VEDOLIZUMAB
     Dosage: 300 MILLIGRAM, Q4WEEKS
     Route: 042
  4. VEDOLIZUMAB [Suspect]
     Active Substance: VEDOLIZUMAB
     Dosage: 300 MILLIGRAM, Q4WEEKS
     Route: 042
     Dates: start: 20210407
  5. MEZAVANT [Concomitant]
     Active Substance: MESALAMINE
     Dosage: UNK
     Dates: start: 20181129

REACTIONS (8)
  - Haematochezia [Unknown]
  - Off label use [Unknown]
  - Abdominal pain [Unknown]
  - Diarrhoea [Unknown]
  - Proctalgia [Unknown]
  - Frequent bowel movements [Unknown]
  - Therapeutic response decreased [Unknown]
  - Mucous stools [Unknown]

NARRATIVE: CASE EVENT DATE: 20210407
